FAERS Safety Report 5919971-7 (Version None)
Quarter: 2008Q4

REPORT INFORMATION
  Report Type: 
  Country: None (occurrence: None)
  Receive Date: 20081015
  Receipt Date: 20081003
  Transmission Date: 20090506
  Serious: Yes (Other)
  Sender: FDA-Public Use
  Company Number: GB-GENENTECH-269173

PATIENT
  Age: 20 Year
  Sex: Male

DRUGS (5)
  1. NUTROPIN [Suspect]
     Indication: GROWTH HORMONE DEFICIENCY
     Dosage: 0.3 MG, QD
     Route: 065
  2. HYDROCORTISONE [Concomitant]
     Indication: ADRENAL INSUFFICIENCY
     Dosage: 10 MG, QD
     Route: 065
  3. DDAVP [Concomitant]
     Indication: DIABETES INSIPIDUS
     Dosage: 600 A?G, QD
     Route: 048
  4. DDAVP [Concomitant]
     Dosage: 200 A?G, BID
     Route: 048
  5. LEVOTHYROXINE SODIUM [Concomitant]
     Indication: DRUG USE FOR UNKNOWN INDICATION
     Dosage: 125 A?G, QD
     Route: 065

REACTIONS (1)
  - HYPERNATRAEMIA [None]
